FAERS Safety Report 25832642 (Version 1)
Quarter: 2025Q3

REPORT INFORMATION
  Report Type: Spontaneous
  Country: US (occurrence: None)
  Receive Date: 20250922
  Receipt Date: 20250922
  Transmission Date: 20251021
  Serious: Yes (Hospitalization)
  Sender: FDA-CTU
  Company Number: None

PATIENT
  Age: 60 Year
  Sex: Female

DRUGS (1)
  1. RETEVMO [Suspect]
     Active Substance: SELPERCATINIB
     Indication: Thyroid cancer
     Dosage: OTHER FREQUENCY : 80MG IN MORNING AND 160MG IN EVEING;?

REACTIONS (5)
  - Therapy interrupted [None]
  - Fall [None]
  - Asthenia [None]
  - Pain [None]
  - Nausea [None]
